FAERS Safety Report 7284624-2 (Version None)
Quarter: 2011Q1

REPORT INFORMATION
  Report Type: 
  Country: None (occurrence: None)
  Receive Date: 20110210
  Receipt Date: 20110131
  Transmission Date: 20110831
  Serious: No
  Sender: FDA-Public Use
  Company Number: US-BIOGENIDEC-2011BI003299

PATIENT
  Age: 68 Year
  Sex: Female

DRUGS (3)
  1. TYSABRI [Suspect]
     Indication: MULTIPLE SCLEROSIS
     Route: 042
     Dates: start: 20100723
  2. AVONEX [Concomitant]
     Indication: MULTIPLE SCLEROSIS
     Route: 030
     Dates: start: 20070303
  3. AVONEX [Concomitant]
     Route: 030

REACTIONS (5)
  - SWELLING [None]
  - HEADACHE [None]
  - FLUSHING [None]
  - GASTROINTESTINAL DISORDER [None]
  - DYSPNOEA [None]
